FAERS Safety Report 11117333 (Version 2)
Quarter: 2015Q2

REPORT INFORMATION
  Report Type: Report from Study
  Country: BR (occurrence: BR)
  Receive Date: 20150515
  Receipt Date: 20150527
  Transmission Date: 20150821
  Serious: Yes (Other)
  Sender: FDA-Public Use
  Company Number: PHHY2014BR166514

PATIENT
  Sex: Female
  Weight: 59 kg

DRUGS (3)
  1. EXODUS//ESCITALOPRAM OXALATE [Concomitant]
     Active Substance: ESCITALOPRAM OXALATE
     Indication: MULTIPLE SCLEROSIS
     Dosage: 20 MG, UNK
     Route: 065
     Dates: start: 201401
  2. GILENYA [Suspect]
     Active Substance: FINGOLIMOD HYDROCHLORIDE
     Indication: MULTIPLE SCLEROSIS
     Dosage: 0.5 MG, QD
     Route: 048
     Dates: start: 20141023
  3. GILENYA [Suspect]
     Active Substance: FINGOLIMOD HYDROCHLORIDE
     Dosage: 0.5 MG, QD
     Route: 048
     Dates: start: 201411

REACTIONS (11)
  - Dyspnoea [Recovering/Resolving]
  - Mood altered [Recovering/Resolving]
  - Emotional disorder [Recovering/Resolving]
  - Fatigue [Recovering/Resolving]
  - Hypotension [Recovering/Resolving]
  - Depression [Not Recovered/Not Resolved]
  - Central nervous system lesion [Unknown]
  - Photophobia [Recovering/Resolving]
  - Muscular weakness [Recovering/Resolving]
  - Eye pain [Recovering/Resolving]
  - Irritability [Recovering/Resolving]
